FAERS Safety Report 19570197 (Version 2)
Quarter: 2021Q3

REPORT INFORMATION
  Report Type: Spontaneous
  Country: US (occurrence: US)
  Receive Date: 20210715
  Receipt Date: 20210809
  Transmission Date: 20211014
  Serious: No
  Sender: FDA-Public Use
  Company Number: US-SA-2021SA232518

PATIENT
  Age: 40 Year
  Sex: Female

DRUGS (1)
  1. DUPIXENT [Suspect]
     Active Substance: DUPILUMAB
     Indication: ASTHMA
     Dosage: QOW
     Route: 058
     Dates: start: 20190729

REACTIONS (3)
  - Product use issue [Unknown]
  - Migraine [Unknown]
  - Parosmia [Unknown]

NARRATIVE: CASE EVENT DATE: 20190729
